FAERS Safety Report 7153182-5 (Version None)
Quarter: 2010Q4

REPORT INFORMATION
  Report Type: 
  Country: None (occurrence: None)
  Receive Date: 20101213
  Receipt Date: 20101201
  Transmission Date: 20110411
  Serious: Yes (Hospitalization)
  Sender: FDA-Public Use
  Company Number: JP-ELI_LILLY_AND_COMPANY-JP201011002878

PATIENT
  Sex: Male

DRUGS (2)
  1. GEMZAR [Suspect]
     Dosage: UNK, UNK
     Route: 042
     Dates: start: 20091125
  2. ANALGESICS [Concomitant]
     Route: 048

REACTIONS (2)
  - HEPATIC STEATOSIS [None]
  - LIVER DISORDER [None]
